FAERS Safety Report 15626722 (Version 3)
Quarter: 2022Q2

REPORT INFORMATION
  Report Type: Spontaneous
  Country: US (occurrence: US)
  Receive Date: 20181116
  Receipt Date: 20220428
  Transmission Date: 20220721
  Serious: Yes (Disabling, Other)
  Sender: FDA-Public Use
  Company Number: US-TEVA-2018-US-975042

PATIENT
  Age: 58 Year
  Sex: Female
  Weight: 58.9 kg

DRUGS (30)
  1. DOCETAXEL [Suspect]
     Active Substance: DOCETAXEL
     Indication: Invasive ductal breast carcinoma
     Dosage: DOSE:10 MG 6 CYCLES EVERY 3 WEEKS
     Route: 042
     Dates: start: 20130910, end: 20131231
  2. DOCETAXEL [Suspect]
     Active Substance: DOCETAXEL
     Dosage: DOSE:10 MG 6 CYCLES EVERY 3 WEEKS
     Route: 042
     Dates: start: 20130910, end: 20131231
  3. CARBOPLATIN [Suspect]
     Active Substance: CARBOPLATIN
     Indication: Invasive ductal breast carcinoma
     Dosage: DOSE: 6 CYCLES EVERY 3 WEEKS
     Route: 042
     Dates: start: 20130910, end: 20131231
  4. HYDROCHLOROTHIAZIDE [Suspect]
     Active Substance: HYDROCHLOROTHIAZIDE
     Indication: Hypertension
     Dosage: 25 MILLIGRAM DAILY;
     Route: 048
     Dates: start: 20130521
  5. DOCETAXEL [Suspect]
     Active Substance: DOCETAXEL
     Indication: Invasive ductal breast carcinoma
     Dosage: DOSE: 10 MG 6 CYCLES EVERY 3 WEEKS
     Route: 042
     Dates: start: 20130910, end: 20131231
  6. DOCETAXEL [Suspect]
     Active Substance: DOCETAXEL
     Dosage: DOSE: 10 MG 6 CYCLES EVERY 3 WEEKS
     Route: 042
     Dates: start: 20130910, end: 20131231
  7. DOCETAXEL [Suspect]
     Active Substance: DOCETAXEL
     Indication: Invasive ductal breast carcinoma
     Dosage: DOSE: 10 MG 6 CYCLES EVERY 3 WEEKS
     Route: 042
     Dates: start: 20130910, end: 20131231
  8. DOCETAXEL [Suspect]
     Active Substance: DOCETAXEL
     Indication: Invasive ductal breast carcinoma
     Dosage: DOSE: 10 MG 6 CYCLES EVERY 3 WEEKS
     Route: 042
     Dates: start: 20130910, end: 20131231
  9. DOCETAXEL [Suspect]
     Active Substance: DOCETAXEL
     Dosage: DOSE: 10 MG 6 CYCLES EVERY 3 WEEKS
     Route: 042
     Dates: start: 20130910, end: 20131231
  10. HERCEPTIN [Suspect]
     Active Substance: TRASTUZUMAB
     Indication: Invasive ductal breast carcinoma
     Dosage: DOSAGE: 6 CYCLES EVERY 3 WEEKS
     Route: 042
     Dates: start: 20130910, end: 20131231
  11. HERCEPTIN [Suspect]
     Active Substance: TRASTUZUMAB
     Dosage: DOSAGE: 6 MG/KG
     Route: 042
     Dates: start: 20140121, end: 20140916
  12. DILTIAZEM [Suspect]
     Active Substance: DILTIAZEM
     Dosage: 120 MILLIGRAM DAILY; EXTENDED RELEASE CAPSULE
     Route: 048
     Dates: start: 20130701
  13. TOPROL XL [Suspect]
     Active Substance: METOPROLOL SUCCINATE
     Indication: Hypertension
     Dosage: 100 MILLIGRAM DAILY; EXTENDED RELEASE TABLET
     Route: 048
     Dates: start: 20130416
  14. PEPCID [Concomitant]
     Active Substance: FAMOTIDINE
     Dosage: DOSE: 20 MG
     Route: 042
     Dates: start: 20130910, end: 20140826
  15. DECADRON [Concomitant]
     Active Substance: DEXAMETHASONE
     Dosage: DOSE:12 MG
     Route: 042
     Dates: start: 20130910, end: 20131231
  16. BENADRYL [Concomitant]
     Active Substance: DIPHENHYDRAMINE HYDROCHLORIDE
     Dosage: DOSE: 25 MG
     Route: 042
     Dates: start: 20130910, end: 20140121
  17. TYLENOL [Concomitant]
     Active Substance: ACETAMINOPHEN
     Dosage: DOSAGE: 100 MG 2 TABLET
     Route: 048
     Dates: start: 20130910, end: 20140826
  18. ALOXI [Concomitant]
     Active Substance: PALONOSETRON HYDROCHLORIDE
     Dosage: DOSAGE: 0.25 MG
     Route: 042
     Dates: start: 20130910, end: 20140826
  19. EMEND [Concomitant]
     Active Substance: APREPITANT
     Dosage: DOSE: 150 MG
     Route: 042
     Dates: start: 20130910, end: 20131231
  20. ATIVAN [Concomitant]
     Active Substance: LORAZEPAM
     Dosage: DOSE: 1MG
     Route: 042
     Dates: start: 20130910, end: 20131112
  21. ASPIRIN [Concomitant]
     Active Substance: ASPIRIN
     Dosage: 81 MILLIGRAM DAILY;
     Route: 048
  22. MINERALS\VITAMINS [Concomitant]
     Active Substance: MINERALS\VITAMINS
     Dosage: DOSE: 1 TABLET DAILY
     Route: 048
     Dates: start: 20100101
  23. PRISTIQ EXTENDED-RELEASE [Concomitant]
     Active Substance: DESVENLAFAXINE SUCCINATE
     Indication: Depression
     Dosage: 50 MILLIGRAM DAILY; EXTENDED RELEASE TABLET
     Route: 048
  24. FENOPROFEN [Concomitant]
     Active Substance: FENOPROFEN
     Dosage: DOSE: 600 MG
     Route: 048
  25. KLONOPIN [Concomitant]
     Active Substance: CLONAZEPAM
     Indication: Anxiety
     Dosage: DOSE: 0.5 MG TABLET
     Route: 048
     Dates: start: 20130702
  26. XANAX [Concomitant]
     Active Substance: ALPRAZOLAM
     Indication: Anxiety
     Dosage: DOSE: 0.5 MG UP TO 2 TIMES EVERY DAY AS NEEDED
     Route: 048
     Dates: start: 20130710
  27. VICODIN [Concomitant]
     Active Substance: ACETAMINOPHEN\HYDROCODONE BITARTRATE
     Indication: Pain
     Dosage: DOSE: 5 MG-500 MG TABLET BY ORAL ROUTE EVERY 6-8 HOURS AS NEEDED
     Route: 048
     Dates: start: 20130710
  28. NORCO [Concomitant]
     Active Substance: ACETAMINOPHEN\HYDROCODONE BITARTRATE
     Indication: Pain
     Dosage: DOSE: 10 MG-325 MG TABLET, 1-2 TABLET BY ORAL ROUTE EVERY 4-6 HOURS AS NEEDED
     Route: 048
     Dates: start: 20130722
  29. AMITRIPTYLINE [Concomitant]
     Active Substance: AMITRIPTYLINE
     Dosage: 10 MILLIGRAM DAILY;
     Route: 048
  30. VITAMIN B12 [Concomitant]
     Active Substance: CYANOCOBALAMIN
     Dosage: 1000 MICROGRAM DAILY;
     Route: 065

REACTIONS (22)
  - Alopecia totalis [Not Recovered/Not Resolved]
  - Madarosis [Not Recovered/Not Resolved]
  - Neutropenia [Recovering/Resolving]
  - Hair texture abnormal [Not Recovered/Not Resolved]
  - Hair colour changes [Not Recovered/Not Resolved]
  - Viral pharyngitis [Unknown]
  - Cough [Unknown]
  - Fatigue [Unknown]
  - Ear pain [Unknown]
  - Anaemia [Unknown]
  - Pyrexia [Unknown]
  - Stomatitis [Unknown]
  - Oral mucosal erythema [Unknown]
  - Weight decreased [Recovering/Resolving]
  - Dizziness [Not Recovered/Not Resolved]
  - Blood pressure decreased [Unknown]
  - Hypertension [Unknown]
  - Chills [Unknown]
  - Malaise [Unknown]
  - Pain in extremity [Unknown]
  - Peripheral swelling [Unknown]
  - Gastritis [Unknown]

NARRATIVE: CASE EVENT DATE: 20131001
